FAERS Safety Report 12529807 (Version 1)
Quarter: 2016Q3

REPORT INFORMATION
  Report Type: Spontaneous
  Country: US (occurrence: None)
  Receive Date: 20160705
  Receipt Date: 20160705
  Transmission Date: 20161109
  Serious: Yes (Other)
  Sender: FDA-Public Use
  Company Number: None

PATIENT
  Sex: Female
  Weight: 56.3 kg

DRUGS (1)
  1. GENERIC TOPAMAX [Suspect]
     Active Substance: TOPIRAMATE

REACTIONS (2)
  - Seizure [None]
  - Condition aggravated [None]
